FAERS Safety Report 8565895-9 (Version None)
Quarter: 2012Q3

REPORT INFORMATION
  Report Type: 
  Country: None (occurrence: None)
  Receive Date: 20120803
  Receipt Date: 20111205
  Transmission Date: 20120928
  Serious: No
  Sender: FDA-Public Use
  Company Number: US-ABBOTT-11P-163-0834391-00

PATIENT
  Sex: Female

DRUGS (3)
  1. NIASPAN [Suspect]
     Dosage: 1500 MG - AT NIGHT
     Route: 048
  2. NIASPAN [Suspect]
     Indication: BLOOD CHOLESTEROL INCREASED
     Route: 048
     Dates: start: 20110610
  3. ASPIRIN [Concomitant]
     Dosage: 325 MG - AT NIGHT

REACTIONS (5)
  - POLLAKIURIA [None]
  - FEELING HOT [None]
  - DYSPNOEA [None]
  - PRURITUS GENERALISED [None]
  - FLUSHING [None]
